FAERS Safety Report 24262891 (Version 1)
Quarter: 2024Q3

REPORT INFORMATION
  Report Type: Spontaneous
  Country: CA (occurrence: CA)
  Receive Date: 20240829
  Receipt Date: 20240829
  Transmission Date: 20241017
  Serious: Yes (Death)
  Sender: SANDOZ
  Company Number: CA-SANDOZ-SDZ2024CA068433

PATIENT
  Age: 68 Year
  Sex: Male

DRUGS (3)
  1. PIRFENIDONE [Suspect]
     Active Substance: PIRFENIDONE
     Dosage: 267 MG, BID
     Route: 048
  2. PIRFENIDONE [Suspect]
     Active Substance: PIRFENIDONE
     Indication: Interstitial lung disease
     Dosage: 534 MG, TID
     Route: 048
  3. PIRFENIDONE [Suspect]
     Active Substance: PIRFENIDONE
     Indication: Fibrosis
     Dosage: 801.0 MG, TID
     Route: 048

REACTIONS (3)
  - Decreased appetite [Fatal]
  - Rash [Fatal]
  - Weight decreased [Fatal]
